FAERS Safety Report 5658537-3 (Version None)
Quarter: 2008Q1

REPORT INFORMATION
  Report Type: 
  Country: None (occurrence: None)
  Receive Date: 20080310
  Receipt Date: 20070515
  Transmission Date: 20080703
  Serious: No
  Sender: FDA-Public Use
  Company Number: US-BAYER-200710649BCC

PATIENT
  Age: 66 Year
  Sex: Female
  Weight: 75 kg

DRUGS (6)
  1. ALEVE [Suspect]
     Indication: ARTHRALGIA
     Dosage: TOTAL DAILY DOSE: 440 MG  UNIT DOSE: 220 MG
     Route: 048
     Dates: start: 20070226
  2. DETROL LA [Concomitant]
  3. CLONAZEPAM [Concomitant]
     Dosage: TOTAL DAILY DOSE: 0.5 MG  UNIT DOSE: 0.5 MG
  4. FLUDROCORTISONE ACETATE [Concomitant]
     Dosage: TOTAL DAILY DOSE: 0.2 MG  UNIT DOSE: 0.1 MG
  5. PAROXETINE HCL [Concomitant]
     Dosage: TOTAL DAILY DOSE: 20 MG  UNIT DOSE: 20 MG
  6. CHLORPHENAMINE [Concomitant]
     Dosage: AS USED: 4 MG  UNIT DOSE: 4 MG

REACTIONS (2)
  - BURNING SENSATION [None]
  - PRURITUS [None]
